FAERS Safety Report 10305966 (Version 1)
Quarter: 2014Q3

REPORT INFORMATION
  Report Type: Spontaneous
  Country: US (occurrence: None)
  Receive Date: 20140714
  Receipt Date: 20140714
  Transmission Date: 20150326
  Serious: Yes (Other)
  Sender: FDA-Public Use
  Company Number: None

PATIENT
  Age: 38 Year
  Sex: Female

DRUGS (1)
  1. TECFIDERA [Suspect]
     Active Substance: DIMETHYL FUMARATE
     Indication: MULTIPLE SCLEROSIS
     Dosage: 120 MG BID FOR 1 WEEK, THEN 240 BID TWICE A DAY ORALLY
     Route: 048
     Dates: start: 20140620

REACTIONS (3)
  - Diarrhoea [None]
  - Abdominal pain upper [None]
  - Headache [None]
